FAERS Safety Report 26154870 (Version 1)
Quarter: 2025Q4

REPORT INFORMATION
  Report Type: Spontaneous
  Country: US (occurrence: US)
  Receive Date: 20251215
  Receipt Date: 20251215
  Transmission Date: 20260117
  Serious: No
  Sender: SPECGX
  Company Number: US-SPECGX-T202500326

PATIENT
  Sex: Female

DRUGS (1)
  1. FENTANYL TRANSDERMAL SYSTEM [Suspect]
     Active Substance: FENTANYL
     Indication: Cancer pain
     Dosage: 25 MCG/HR, EVERY 3 DAYS
     Route: 062
     Dates: start: 202501

REACTIONS (6)
  - Urticaria [Unknown]
  - Application site rash [Unknown]
  - Hypersensitivity [Unknown]
  - Pruritus [Unknown]
  - Agitation [Unknown]
  - Product adhesion issue [Unknown]

NARRATIVE: CASE EVENT DATE: 20250101
